FAERS Safety Report 19831437 (Version 6)
Quarter: 2023Q4

REPORT INFORMATION
  Report Type: Report from Study
  Country: CA (occurrence: CA)
  Receive Date: 20210915
  Receipt Date: 20231009
  Transmission Date: 20240110
  Serious: Yes (Other)
  Sender: FDA-Public Use
  Company Number: CA-JNJFOC-20210921486

PATIENT
  Age: 52 Year
  Sex: Male

DRUGS (1)
  1. REMICADE [Suspect]
     Active Substance: INFLIXIMAB
     Indication: Crohn^s disease
     Dosage: PRODUCT EXPIRATION DATE: 30-SEP-2025
     Route: 042

REACTIONS (5)
  - Skin cancer [Recovered/Resolved]
  - Scar [Not Recovered/Not Resolved]
  - Mass [Not Recovered/Not Resolved]
  - Incision site erythema [Recovered/Resolved]
  - Erythema [Not Recovered/Not Resolved]

NARRATIVE: CASE EVENT DATE: 20210101
